FAERS Safety Report 4800714-5 (Version None)
Quarter: 2005Q3

REPORT INFORMATION
  Report Type: 
  Country: None (occurrence: None)
  Receive Date: 20050929
  Receipt Date: 20050817
  Transmission Date: 20060218
  Serious: No
  Sender: FDA-Public Use
  Company Number: 05P-163-0306134

PATIENT
  Age: 60 Year
  Sex: Female
  Weight: 77.1115 kg

DRUGS (11)
  1. HUMIRA [Suspect]
     Indication: RHEUMATOID ARTHRITIS
     Dosage: 40 MG, 1 IN 2 WK, SUBCUTANEOUS
     Route: 058
     Dates: start: 20050705
  2. METHOTREXATE SODIUM [Concomitant]
  3. FOLIC ACID [Concomitant]
  4. LEVOTHROXINE SODIUM [Concomitant]
  5. FUROSEMIDE [Concomitant]
  6. OXYCODONE [Concomitant]
  7. POTASSIUM [Concomitant]
  8. MULTI-VITAMINS [Concomitant]
  9. IRON [Concomitant]
  10. RISEDRONATE SODIUM [Concomitant]
  11. IBUPROFEN [Concomitant]

REACTIONS (4)
  - INJECTION SITE ERYTHEMA [None]
  - INJECTION SITE IRRITATION [None]
  - INJECTION SITE PAIN [None]
  - SINUS CONGESTION [None]
